FAERS Safety Report 5395221-8 (Version None)
Quarter: 2007Q3

REPORT INFORMATION
  Report Type: 
  Country: None (occurrence: None)
  Receive Date: 20070724
  Receipt Date: 20060911
  Transmission Date: 20080115
  Serious: Yes (Other)
  Sender: FDA-Public Use
  Company Number: US-BRISTOL-MYERS SQUIBB COMPANY-13493846

PATIENT
  Age: 15 Month
  Sex: Male
  Weight: 9 kg

DRUGS (1)
  1. AMIKIN [Suspect]
     Route: 042
     Dates: start: 20060829, end: 20060829

REACTIONS (2)
  - ACCIDENTAL OVERDOSE [None]
  - MEDICATION ERROR [None]
